FAERS Safety Report 5119668-X (Version None)
Quarter: 2006Q3

REPORT INFORMATION
  Report Type: 
  Country: None (occurrence: None)
  Receive Date: 20060928
  Receipt Date: 20060915
  Transmission Date: 20061208
  Serious: Yes (Other)
  Sender: FDA-Public Use
  Company Number: 2006112916

PATIENT
  Age: 50 Year
  Sex: Male

DRUGS (3)
  1. NEURONTIN [Suspect]
     Dosage: 800 MG (1 D)
  2. LYRICA [Suspect]
     Dosage: 75 MG (1 D)
  3. DEPAKOTE [Suspect]

REACTIONS (1)
  - ANAPHYLACTIC REACTION [None]
